FAERS Safety Report 7150511-3 (Version None)
Quarter: 2010Q4

REPORT INFORMATION
  Report Type: 
  Country: None (occurrence: None)
  Receive Date: 20101210
  Receipt Date: 20101110
  Transmission Date: 20110411
  Serious: No
  Sender: FDA-Public Use
  Company Number: US-BAYER-2010-001616

PATIENT
  Sex: Male
  Weight: 113 kg

DRUGS (1)
  1. ALEVE (CAPLET) [Suspect]
     Indication: HEADACHE
     Dosage: 1 DF, BID
     Route: 048
     Dates: start: 20101108, end: 20101108

REACTIONS (1)
  - HEADACHE [None]
